FAERS Safety Report 13640149 (Version 3)
Quarter: 2017Q4

REPORT INFORMATION
  Report Type: Report from Study
  Country: US (occurrence: US)
  Receive Date: 20170609
  Receipt Date: 20171213
  Transmission Date: 20180320
  Serious: Yes (Other)
  Sender: FDA-Public Use
  Company Number: US-JAZZ-2017-US-006558

PATIENT
  Sex: Female

DRUGS (3)
  1. XYREM [Suspect]
     Active Substance: SODIUM OXYBATE
     Indication: NARCOLEPSY
     Dosage: 2.25 G, BID
     Route: 048
     Dates: start: 201705, end: 20170529
  2. XYREM [Suspect]
     Active Substance: SODIUM OXYBATE
     Indication: CATAPLEXY
     Dosage: 2.5 G, TID
     Route: 048
     Dates: start: 20170530
  3. ZOLPIMIST [Suspect]
     Active Substance: ZOLPIDEM TARTRATE
     Indication: PRODUCT USED FOR UNKNOWN INDICATION

REACTIONS (17)
  - Nightmare [Not Recovered/Not Resolved]
  - Confusional state [Unknown]
  - Therapeutic response unexpected [Unknown]
  - Product preparation error [Unknown]
  - Sedation [Unknown]
  - Meniere^s disease [Not Recovered/Not Resolved]
  - Memory impairment [Not Recovered/Not Resolved]
  - Fatigue [Not Recovered/Not Resolved]
  - Movement disorder [Unknown]
  - Drug ineffective [Unknown]
  - Pain [Unknown]
  - Pre-existing condition improved [Unknown]
  - Product storage error [Unknown]
  - Hypovitaminosis [Not Recovered/Not Resolved]
  - Mineral deficiency [Not Recovered/Not Resolved]
  - Head injury [Unknown]
  - Tremor [Unknown]

NARRATIVE: CASE EVENT DATE: 2017
